FAERS Safety Report 9097009 (Version 1)
Quarter: 2013Q1

REPORT INFORMATION
  Report Type: Spontaneous
  Country: CN (occurrence: None)
  Receive Date: 20130123
  Receipt Date: 20130123
  Transmission Date: 20140127
  Serious: Yes (Other)
  Sender: FDA-Public Use
  Company Number: PD 181

PATIENT
  Age: 10 Year
  Sex: Male

DRUGS (1)
  1. LEVETIRACETAM (STRENGTH MFR UNKNOWN) [Suspect]
     Dosage: 250 MG/DAY ORAL
     Route: 048

REACTIONS (2)
  - Convulsion [None]
  - Condition aggravated [None]
